FAERS Safety Report 8167331-3 (Version None)
Quarter: 2012Q1

REPORT INFORMATION
  Report Type: 
  Country: None (occurrence: None)
  Receive Date: 20120227
  Receipt Date: 20120221
  Transmission Date: 20120608
  Serious: Yes (Other)
  Sender: FDA-Public Use
  Company Number: US-PFIZER INC-2012048426

PATIENT
  Sex: Male

DRUGS (1)
  1. CELEBREX [Suspect]
     Dosage: UNK

REACTIONS (2)
  - ARTHROPATHY [None]
  - MEDICATION ERROR [None]
